FAERS Safety Report 21975277 (Version 6)
Quarter: 2023Q2

REPORT INFORMATION
  Report Type: Report from Study
  Country: US (occurrence: US)
  Receive Date: 20230210
  Receipt Date: 20230608
  Transmission Date: 20230722
  Serious: Yes (Congenital Anomaly, Other)
  Sender: FDA-Public Use
  Company Number: US-ABBVIE-4262791

PATIENT
  Sex: Female

DRUGS (2)
  1. HUMIRA [Suspect]
     Active Substance: ADALIMUMAB
     Indication: Rheumatoid arthritis
     Route: 058
     Dates: start: 20171211
  2. HUMIRA [Suspect]
     Active Substance: ADALIMUMAB

REACTIONS (15)
  - Freeman-Sheldon syndrome [Unknown]
  - Inflammation [Unknown]
  - Medical device site burn [Unknown]
  - Visual impairment [Not Recovered/Not Resolved]
  - Medical device pain [Unknown]
  - Immunodeficiency [Unknown]
  - Vitamin D decreased [Unknown]
  - Eye pain [Unknown]
  - Eye disorder [Not Recovered/Not Resolved]
  - Blindness [Unknown]
  - Corneal disorder [Unknown]
  - Drug ineffective [Unknown]
  - Eye ulcer [Recovered/Resolved]
  - Pain in extremity [Unknown]
  - Eye inflammation [Unknown]
